FAERS Safety Report 4384713-6 (Version None)
Quarter: 2004Q2

REPORT INFORMATION
  Report Type: 
  Country: None (occurrence: None)
  Receive Date: 20040621
  Receipt Date: 20040614
  Transmission Date: 20050107
  Serious: Yes (Life-Threatening, Hospitalization)
  Sender: FDA-Public Use
  Company Number: 2004PK01020

PATIENT
  Age: 76 Year
  Sex: Female
  Weight: 68 kg

DRUGS (11)
  1. BELOC ZOK [Suspect]
     Indication: HYPERTENSION
     Dosage: 23.75 MG BID PO
     Route: 048
     Dates: start: 20020101
  2. ACTRAPID HUMAN [Suspect]
     Indication: DIABETES MELLITUS
     Dosage: 30 IU DAILY SQ
     Route: 058
     Dates: start: 20031101
  3. AMARYL [Suspect]
     Indication: DIABETES MELLITUS
     Dosage: 2 MG DAILY PO
     Route: 048
     Dates: start: 20031101, end: 20040305
  4. ARELIX ACE [Suspect]
     Indication: HYPERTENSION
     Dosage: 1 DF DAILY PO
     Route: 048
     Dates: start: 20030201
  5. PROTAPHAN [Suspect]
     Indication: DIABETES MELLITUS
     Dosage: 20 IU DAILY SQ
     Route: 058
     Dates: start: 20031101
  6. DIGITOXIN TAB [Concomitant]
  7. FALITHROM [Concomitant]
  8. METHIZOL [Concomitant]
  9. NORVASC [Concomitant]
  10. ACC LONG [Concomitant]
  11. UNAT [Concomitant]

REACTIONS (6)
  - BLOOD GLUCOSE INCREASED [None]
  - COMA [None]
  - DRUG INTERACTION [None]
  - HYPERHIDROSIS [None]
  - MARKEDLY REDUCED DIETARY INTAKE [None]
  - SHOCK HYPOGLYCAEMIC [None]
